FAERS Safety Report 4748788-4 (Version None)
Quarter: 2005Q3

REPORT INFORMATION
  Report Type: 
  Country: None (occurrence: None)
  Receive Date: 20050812
  Receipt Date: 20050624
  Transmission Date: 20060218
  Serious: Yes (Hospitalization)
  Sender: FDA-Public Use
  Company Number: 408998

PATIENT
  Age: 48 Year
  Sex: Female

DRUGS (2)
  1. PEGASYS [Suspect]
     Indication: HEPATITIS C VIRUS
     Dosage: 1 PER WEEK SUBCUTANEOUS
     Route: 058
     Dates: start: 20050208
  2. COPEGUS [Suspect]
     Indication: HEPATITIS C VIRUS
     Dosage: 800 MG DAILY ORAL
     Route: 048
     Dates: start: 20050208

REACTIONS (3)
  - FATIGUE [None]
  - PNEUMONIA [None]
  - RED BLOOD CELL COUNT DECREASED [None]
